FAERS Safety Report 6004576-2 (Version None)
Quarter: 2008Q4

REPORT INFORMATION
  Report Type: 
  Country: None (occurrence: None)
  Receive Date: 20081216
  Receipt Date: 20071205
  Transmission Date: 20090506
  Serious: No
  Sender: FDA-Public Use
  Company Number: US-BRISTOL-MYERS SQUIBB COMPANY-14004741

PATIENT
  Sex: Male

DRUGS (1)
  1. PRAVACHOL [Suspect]

REACTIONS (1)
  - HAEMATEMESIS [None]
